FAERS Safety Report 8517776-4 (Version None)
Quarter: 2012Q3

REPORT INFORMATION
  Report Type: 
  Country: None (occurrence: None)
  Receive Date: 20120718
  Receipt Date: 20120709
  Transmission Date: 20120928
  Serious: Yes (Hospitalization)
  Sender: FDA-Public Use
  Company Number: AU-EISAI INC-E3810-05672-SPO-AU

PATIENT
  Sex: Male

DRUGS (5)
  1. PRAMIPEXOLE DIHYDROCHLORIDE [Interacting]
     Route: 048
     Dates: start: 20100715, end: 20101227
  2. PRAVACHOL [Concomitant]
  3. RABEPRAZOLE SODIUM [Suspect]
     Dosage: UNKNOWN
     Route: 048
  4. FOSAMAX PLUS D [Concomitant]
  5. RAMACE [Concomitant]

REACTIONS (3)
  - HALLUCINATION [None]
  - CONFUSIONAL STATE [None]
  - PARANOIA [None]
